FAERS Safety Report 20073446 (Version 3)
Quarter: 2023Q1

REPORT INFORMATION
  Report Type: Spontaneous
  Country: US (occurrence: US)
  Receive Date: 20211116
  Receipt Date: 20230301
  Transmission Date: 20230418
  Serious: Yes (Other)
  Sender: FDA-Public Use
  Company Number: US-NOVARTISPH-NVSC2021US259774

PATIENT
  Age: 5 Month

DRUGS (2)
  1. GILENYA [Suspect]
     Active Substance: FINGOLIMOD HYDROCHLORIDE
     Indication: Multiple sclerosis
     Dosage: 0.5 MG, QD
     Route: 048
  2. GILENYA [Suspect]
     Active Substance: FINGOLIMOD HYDROCHLORIDE
     Indication: Relapsing multiple sclerosis
     Dosage: 0.5 MG, QD
     Route: 048
     Dates: start: 20200101, end: 20211113

REACTIONS (2)
  - Oropharyngeal cancer [Unknown]
  - Product use issue [Unknown]

NARRATIVE: CASE EVENT DATE: 20210923
